FAERS Safety Report 15369038 (Version 3)
Quarter: 2019Q1

REPORT INFORMATION
  Report Type: Report from Study
  Country: AT (occurrence: AT)
  Receive Date: 20180911
  Receipt Date: 20190207
  Transmission Date: 20190417
  Serious: Yes (Hospitalization)
  Sender: FDA-Public Use
  Company Number: AT-ROCHE-2178716

PATIENT
  Age: 79 Year
  Sex: Male
  Weight: 53.8 kg

DRUGS (14)
  1. ONDANSETRON [Concomitant]
     Active Substance: ONDANSETRON
     Route: 065
  2. ERYCYTOL DEPOT [Concomitant]
     Route: 065
     Dates: start: 201705
  3. TARDYFERON (AUSTRIA) [Concomitant]
  4. IBRUTINIB [Suspect]
     Active Substance: IBRUTINIB
     Indication: CHRONIC LYMPHOCYTIC LEUKAEMIA
     Dosage: CYCLES 1-12: 420 MG, D1-28, Q28D; CYCLES 13-36: 420 MG, D1-28, Q28D?LAST DOSE PRIOR TO SAE ON 25/AUG
     Route: 048
     Dates: start: 20171016
  5. PANTOLOC [Concomitant]
     Active Substance: PANTOPRAZOLE SODIUM
     Route: 048
     Dates: start: 20170831
  6. SINVASTATINA [Concomitant]
     Active Substance: SIMVASTATIN
     Route: 048
     Dates: start: 201405
  7. SULFAMETROLE/TRIMETHOPRIM [Concomitant]
     Route: 065
     Dates: start: 20171103
  8. LIDAPRIM FORTE [Concomitant]
  9. VENETOCLAX. [Suspect]
     Active Substance: VENETOCLAX
     Indication: CHRONIC LYMPHOCYTIC LEUKAEMIA
     Dosage: CYCLE 1: 20 MG (2 TABL. AT 10 MG), D22-28, Q28D?CYCLE 2: 50 MG (1 TABL. AT 50 MG), D1-7; 100 MG (1 T
     Route: 048
     Dates: start: 20171106
  10. MYCOSTATIN [Concomitant]
     Active Substance: NYSTATIN
     Route: 065
     Dates: start: 20170831
  11. OBINUTUZUMAB. [Suspect]
     Active Substance: OBINUTUZUMAB
     Indication: CHRONIC LYMPHOCYTIC LEUKAEMIA
     Dosage: CYCLE 1: 100 MG, D1; 900 MG, D1(2); 1000 MG, D8+15, Q28D?CYCLES 2-6: 1000 MG, D1, Q28D?LAST DOSE PRI
     Route: 042
     Dates: start: 20171016
  12. LASILACTON [Concomitant]
     Active Substance: FUROSEMIDE\SPIRONOLACTONE
     Dosage: TOTAL DAILY DOSE 1 TAB
     Route: 048
     Dates: start: 20171011
  13. ENTEROBENE [Concomitant]
     Route: 048
     Dates: start: 20180205
  14. FOLIC ACID. [Concomitant]
     Active Substance: FOLIC ACID
     Route: 065
     Dates: start: 20170902

REACTIONS (1)
  - Infection [Recovered/Resolved]

NARRATIVE: CASE EVENT DATE: 20180825
